FAERS Safety Report 21440481 (Version 3)
Quarter: 2024Q3

REPORT INFORMATION
  Report Type: Spontaneous
  Country: US (occurrence: US)
  Receive Date: 20221011
  Receipt Date: 20240806
  Transmission Date: 20241016
  Serious: No
  Sender: AMNEAL
  Company Number: US-AMNEAL PHARMACEUTICALS-2022-AMRX-01617

PATIENT
  Age: 68 Year
  Sex: Male

DRUGS (8)
  1. BACLOFEN [Suspect]
     Active Substance: BACLOFEN
     Indication: Muscle spasms
     Dosage: 610.567 MCG/DAU
     Route: 037
     Dates: start: 20211101, end: 20211216
  2. BACLOFEN [Suspect]
     Active Substance: BACLOFEN
     Indication: Muscle spasticity
     Dosage: INCREASED
     Route: 037
     Dates: start: 20211216, end: 20220110
  3. BACLOFEN [Suspect]
     Active Substance: BACLOFEN
     Dosage: INCREASED
     Route: 037
     Dates: start: 20220110, end: 20220223
  4. BACLOFEN [Suspect]
     Active Substance: BACLOFEN
     Dosage: INCREASED
     Route: 037
     Dates: start: 20220223
  5. BACLOFEN [Suspect]
     Active Substance: BACLOFEN
     Dosage: INCREASED
     Route: 037
     Dates: start: 20230823
  6. BACLOFEN [Suspect]
     Active Substance: BACLOFEN
     Dosage: INCREASED
     Route: 037
     Dates: start: 20231109
  7. BACLOFEN [Suspect]
     Active Substance: BACLOFEN
     Dosage: INCREASED
     Route: 037
     Dates: start: 20240418
  8. BACLOFEN [Suspect]
     Active Substance: BACLOFEN
     Dosage: INCREASED
     Route: 037
     Dates: start: 20240201

REACTIONS (8)
  - Musculoskeletal stiffness [Recovered/Resolved]
  - Muscle spasms [Recovered/Resolved]
  - Muscle spasticity [Recovered/Resolved]
  - Tremor [Recovered/Resolved]
  - Muscle tightness [Recovered/Resolved]
  - Discomfort [Recovered/Resolved]
  - Breakthrough pain [Recovered/Resolved]
  - Therapeutic product effect decreased [Unknown]

NARRATIVE: CASE EVENT DATE: 20211216
